FAERS Safety Report 16841494 (Version 5)
Quarter: 2022Q1

REPORT INFORMATION
  Report Type: Report from Study
  Country: FR (occurrence: FR)
  Receive Date: 20190923
  Receipt Date: 20220118
  Transmission Date: 20220424
  Serious: Yes (Death, Hospitalization, Other)
  Sender: FDA-Public Use
  Company Number: FR-TAKEDA-2019TUS053161

PATIENT
  Sex: Male
  Weight: 71 kg

DRUGS (3)
  1. IXAZOMIB [Suspect]
     Active Substance: IXAZOMIB
     Indication: Plasma cell myeloma
     Dosage: 4 MILLIGRAM
     Route: 065
  2. REVLIMID [Suspect]
     Active Substance: LENALIDOMIDE
     Indication: Plasma cell myeloma
     Dosage: UNK
     Route: 065
     Dates: end: 20180730
  3. DEXAMETHASONE [Suspect]
     Active Substance: DEXAMETHASONE
     Dosage: UNK
     Route: 065

REACTIONS (14)
  - Plasma cell myeloma [Fatal]
  - Dyspnoea [Recovering/Resolving]
  - Cytopenia [Unknown]
  - Renal impairment [Unknown]
  - Hypoxia [Recovering/Resolving]
  - Acute kidney injury [Recovering/Resolving]
  - Febrile bone marrow aplasia [Recovering/Resolving]
  - Cardiac asthma [Unknown]
  - Acute pulmonary oedema [Unknown]
  - Confusional state [Unknown]
  - Bone pain [Recovering/Resolving]
  - Nervous system disorder [Unknown]
  - Bronchitis viral [Recovered/Resolved]
  - Diarrhoea [Unknown]

NARRATIVE: CASE EVENT DATE: 20180601
